FAERS Safety Report 11505858 (Version 1)
Quarter: 2015Q3

REPORT INFORMATION
  Report Type: Spontaneous
  Country: DE (occurrence: None)
  Receive Date: 20150911
  Receipt Date: 20150911
  Transmission Date: 20151125
  Serious: No
  Sender: FDA-Public Use
  Company Number: DE-LHC-2015119

PATIENT
  Sex: Female

DRUGS (1)
  1. CONOXIA (OXYGEN) (***) (OXYGEN) ( (VERUM) [Suspect]
     Active Substance: OXYGEN

REACTIONS (2)
  - Frostbite [None]
  - Accidental exposure to product [None]

NARRATIVE: CASE EVENT DATE: 20150901
